FAERS Safety Report 8539935-7 (Version None)
Quarter: 2012Q3

REPORT INFORMATION
  Report Type: 
  Country: None (occurrence: None)
  Receive Date: 20120726
  Receipt Date: 20120718
  Transmission Date: 20120928
  Serious: Yes (Other)
  Sender: FDA-Public Use
  Company Number: US-ASTRAZENECA-2011SE68924

PATIENT
  Age: 64 Year
  Sex: Female
  Weight: 77.1 kg

DRUGS (11)
  1. MAGNESIUM HYDROXIDE TAB [Suspect]
     Route: 048
  2. LISINOPRIL [Suspect]
     Route: 048
     Dates: start: 20010728
  3. IMDUR [Suspect]
     Route: 048
     Dates: start: 20070503
  4. NITROGLYCERIN [Suspect]
     Route: 060
  5. NEXIUM [Suspect]
     Route: 048
  6. TOPROL-XL [Suspect]
     Route: 048
     Dates: start: 20070503
  7. XANAX [Suspect]
     Dosage: 0.5 MG, 1-2 TABLETS 04H PRN
     Route: 065
     Dates: start: 20070503
  8. RANITIDINE HCL [Suspect]
     Route: 048
  9. ASPIRIN [Suspect]
     Route: 065
     Dates: start: 20070503
  10. ZYRTEC [Suspect]
     Indication: HYPERSENSITIVITY
     Route: 065
     Dates: start: 20100125
  11. CRESTOR [Suspect]
     Route: 048

REACTIONS (18)
  - PERIPHERAL ARTERIAL OCCLUSIVE DISEASE [None]
  - SEASONAL ALLERGY [None]
  - CHRONIC OBSTRUCTIVE PULMONARY DISEASE [None]
  - HYPERLIPIDAEMIA [None]
  - HIATUS HERNIA [None]
  - IRRITABLE BOWEL SYNDROME [None]
  - DIZZINESS [None]
  - GASTROOESOPHAGEAL REFLUX DISEASE [None]
  - HYPERTENSION [None]
  - ANXIETY [None]
  - DEPRESSION [None]
  - CONSTIPATION [None]
  - HYPERCHOLESTEROLAEMIA [None]
  - DYSPEPSIA [None]
  - DIARRHOEA [None]
  - LUNG NEOPLASM MALIGNANT [None]
  - AFFECTIVE DISORDER [None]
  - NAUSEA [None]
